FAERS Safety Report 6010071-7 (Version None)
Quarter: 2008Q4

REPORT INFORMATION
  Report Type: 
  Country: None (occurrence: None)
  Receive Date: 20081218
  Receipt Date: 20081212
  Transmission Date: 20090506
  Serious: Yes (Death)
  Sender: FDA-Public Use
  Company Number: US-CELGENEUS-163-20785-08110812

PATIENT
  Sex: Male

DRUGS (2)
  1. THALOMID [Suspect]
     Indication: MULTIPLE MYELOMA
     Route: 048
     Dates: start: 20080818
  2. THALOMID [Suspect]
     Route: 048
     Dates: start: 20080417, end: 20080801

REACTIONS (4)
  - ANAEMIA [None]
  - CARDIAC DISORDER [None]
  - CONSTIPATION [None]
  - MULTIPLE MYELOMA [None]
